FAERS Safety Report 4987302-5 (Version None)
Quarter: 2006Q2

REPORT INFORMATION
  Report Type: 
  Country: None (occurrence: None)
  Receive Date: 20060501
  Receipt Date: 20050304
  Transmission Date: 20061013
  Serious: Yes (Hospitalization, Other)
  Sender: FDA-Public Use
  Company Number: US-MERCK-0503USA00977

PATIENT
  Age: 41 Year
  Sex: Male
  Weight: 84 kg

DRUGS (4)
  1. VIOXX [Suspect]
     Indication: MYALGIA
     Route: 048
     Dates: start: 20030601, end: 20040401
  2. ZYRTEC [Concomitant]
     Route: 065
  3. DIOVAN [Concomitant]
     Route: 065
  4. ADVIL [Concomitant]
     Route: 065

REACTIONS (7)
  - ACUTE CORONARY SYNDROME [None]
  - ADVERSE EVENT [None]
  - CEREBROVASCULAR ACCIDENT [None]
  - CHEST PAIN [None]
  - DEPRESSION [None]
  - MIGRAINE [None]
  - STOMACH DISCOMFORT [None]
